FAERS Safety Report 23757546 (Version 2)
Quarter: 2025Q3

REPORT INFORMATION
  Report Type: Spontaneous
  Country: US (occurrence: US)
  Receive Date: 20240418
  Receipt Date: 20250904
  Transmission Date: 20251021
  Serious: Yes (Disabling, Other)
  Sender: TARO
  Company Number: US-TARO PHARMACEUTICALS USA INC.-2023TAR00513

PATIENT

DRUGS (1)
  1. FLUOCINONIDE [Suspect]
     Active Substance: FLUOCINONIDE
     Indication: Systemic lupus erythematosus rash
     Route: 061
     Dates: start: 2020, end: 202304

REACTIONS (6)
  - Retinal detachment [Recovered/Resolved]
  - Ophthalmic herpes simplex [Unknown]
  - Blindness unilateral [Not Recovered/Not Resolved]
  - Thermal burns of eye [Not Recovered/Not Resolved]
  - Accidental exposure to product [Unknown]
  - Visual impairment [Unknown]

NARRATIVE: CASE EVENT DATE: 20220101
